FAERS Safety Report 5774296-8 (Version None)
Quarter: 2008Q2

REPORT INFORMATION
  Report Type: 
  Country: None (occurrence: None)
  Receive Date: 20080616
  Receipt Date: 20080603
  Transmission Date: 20081010
  Serious: Yes (Death, Life-Threatening, Hospitalization)
  Sender: FDA-Public Use
  Company Number: FI-NOVOPROD-265761

PATIENT
  Sex: Female
  Weight: 58 kg

DRUGS (10)
  1. NOVOSEVEN [Suspect]
     Indication: TRAUMATIC HAEMORRHAGE
     Dosage: 3 DOSES
     Route: 042
     Dates: start: 20070719, end: 20070719
  2. NOVOSEVEN [Concomitant]
     Indication: HAEMORRHAGE
     Dosage: 3.6 MG, UNK
     Route: 042
     Dates: start: 20070719, end: 20070719
  3. NOVOSEVEN [Concomitant]
     Dosage: 2.4 MG, UNK
     Route: 042
     Dates: start: 20070719, end: 20070719
  4. NOVOSEVEN [Concomitant]
     Dosage: 1.2 MG, UNK
     Route: 042
     Dates: start: 20070719, end: 20070719
  5. FENTANYL [Concomitant]
     Indication: PAIN
     Route: 042
     Dates: start: 20070719, end: 20070719
  6. PROPOFOL [Concomitant]
     Indication: SEDATIVE THERAPY
     Route: 042
     Dates: start: 20070719, end: 20070719
  7. KETANEST                           /00171201/ [Concomitant]
     Indication: SEDATIVE THERAPY
     Route: 042
     Dates: start: 20070719, end: 20070719
  8. ROCURONIUM BROMIDE [Concomitant]
     Indication: MUSCLE RELAXANT THERAPY
     Route: 042
     Dates: start: 20070719, end: 20070719
  9. SUKOLIN [Concomitant]
     Indication: SEDATIVE THERAPY
     Route: 042
     Dates: start: 20070719, end: 20070719
  10. SUKOLIN [Concomitant]

REACTIONS (1)
  - DISSEMINATED INTRAVASCULAR COAGULATION [None]
